FAERS Safety Report 5333301-3 (Version None)
Quarter: 2007Q2

REPORT INFORMATION
  Report Type: 
  Country: None (occurrence: None)
  Receive Date: 20070524
  Receipt Date: 20070103
  Transmission Date: 20071010
  Serious: Yes (Death, Disabling)
  Sender: FDA-Public Use
  Company Number: HQWYE695207FEB06

PATIENT
  Sex: Male
  Weight: 82.63 kg

DRUGS (1)
  1. EFFEXOR XR [Suspect]

REACTIONS (6)
  - COMPLETED SUICIDE [None]
  - EMOTIONAL DISTRESS [None]
  - FEELING OF DESPAIR [None]
  - INJURY [None]
  - PAIN [None]
  - SUICIDAL IDEATION [None]
